FAERS Safety Report 24267672 (Version 2)
Quarter: 2024Q3

REPORT INFORMATION
  Report Type: Spontaneous
  Country: NL (occurrence: NL)
  Receive Date: 20240830
  Receipt Date: 20240930
  Transmission Date: 20241017
  Serious: Yes (Other)
  Sender: PFIZER
  Company Number: NL-PFIZER INC-202400245613

PATIENT

DRUGS (1)
  1. FRAGMIN [Suspect]
     Active Substance: DALTEPARIN SODIUM
     Dosage: 5000 IU= 0.2 ML

REACTIONS (3)
  - Device material issue [Unknown]
  - Injection site haemorrhage [Unknown]
  - Injury associated with device [Unknown]
